FAERS Safety Report 8374476-1 (Version None)
Quarter: 2012Q2

REPORT INFORMATION
  Report Type: 
  Country: None (occurrence: None)
  Receive Date: 20120521
  Receipt Date: 20120517
  Transmission Date: 20120825
  Serious: Yes (Other)
  Sender: FDA-Public Use
  Company Number: CHPA2012US010188

PATIENT
  Age: 69 Year
  Sex: Female

DRUGS (1)
  1. VOLTAREN [Suspect]
     Indication: TENDONITIS
     Dosage: 4 G, QID
     Route: 061
     Dates: start: 20110822, end: 20110822

REACTIONS (7)
  - PAIN IN EXTREMITY [None]
  - FATIGUE [None]
  - RASH [None]
  - HYPERTENSION [None]
  - OFF LABEL USE [None]
  - MYOCARDIAL INFARCTION [None]
  - SKIN WARM [None]
